FAERS Safety Report 18199741 (Version 1)
Quarter: 2020Q3

REPORT INFORMATION
  Report Type: Spontaneous
  Country: US (occurrence: US)
  Receive Date: 20200827
  Receipt Date: 20200827
  Transmission Date: 20201103
  Serious: No
  Sender: FDA-Public Use
  Company Number: US-SA-2020SA011993

PATIENT

DRUGS (1)
  1. DUPIXENT [Suspect]
     Active Substance: DUPILUMAB
     Indication: DERMATITIS ATOPIC
     Dosage: 300 MG, QOW
     Route: 058
     Dates: start: 201911

REACTIONS (7)
  - Limb discomfort [Unknown]
  - Fear of injection [Unknown]
  - Therapeutic response decreased [Unknown]
  - Dry eye [Unknown]
  - Visual impairment [Unknown]
  - Rash [Unknown]
  - Eye pruritus [Unknown]
